FAERS Safety Report 4960817-1 (Version None)
Quarter: 2006Q1

REPORT INFORMATION
  Report Type: 
  Country: None (occurrence: None)
  Receive Date: 20060331
  Receipt Date: 20060331
  Transmission Date: 20060701
  Serious: Yes (Other)
  Sender: FDA-Public Use
  Company Number: None

PATIENT
  Age: 53 Year
  Sex: Female
  Weight: 66.6788 kg

DRUGS (1)
  1. CLEAR EYES FOR DRY EYES PLUS ACR 0.5 OZ PRESTIGE BRANDS, INC. [Suspect]
     Indication: DRY EYE
     Dosage: ONE DROP IN EACH EYE PRN OTHER
     Route: 050
     Dates: start: 20060326, end: 20060326

REACTIONS (2)
  - PHARMACEUTICAL PRODUCT COMPLAINT [None]
  - VISION BLURRED [None]
